FAERS Safety Report 16844418 (Version 1)
Quarter: 2019Q3

REPORT INFORMATION
  Report Type: Report from Study
  Country: JP (occurrence: JP)
  Receive Date: 20190924
  Receipt Date: 20190924
  Transmission Date: 20191005
  Serious: Yes (Life-Threatening, Hospitalization, Other)
  Sender: FDA-Public Use
  Company Number: JP-GLAXOSMITHKLINE-JP2019JPN010943

PATIENT
  Age: 7 Decade
  Sex: Female
  Weight: 60 kg

DRUGS (29)
  1. PREDONINE [Suspect]
     Active Substance: PREDNISOLONE
     Indication: SYSTEMIC LUPUS ERYTHEMATOSUS
     Dosage: 12 MG, 1D
     Route: 048
     Dates: start: 20180314, end: 20180905
  2. PREDONINE [Suspect]
     Active Substance: PREDNISOLONE
     Dosage: 10 MG, 1D
     Route: 048
     Dates: start: 20181004, end: 201812
  3. PREDONINE [Suspect]
     Active Substance: PREDNISOLONE
     Dosage: 5 MG, 1D
     Route: 048
     Dates: start: 20190307
  4. TAKECAB TABLETS [Concomitant]
     Indication: PROPHYLAXIS
     Dosage: UNK
  5. HYDROCHLOROTHIAZIDE. [Concomitant]
     Active Substance: HYDROCHLOROTHIAZIDE
     Dosage: UNK
  6. BELIMUMAB [Suspect]
     Active Substance: BELIMUMAB
     Dosage: 10 MG/KG, ONCE IN EVERY FOUR WEEKS
     Route: 041
     Dates: start: 20190207, end: 20190307
  7. PREDONINE [Suspect]
     Active Substance: PREDNISOLONE
     Dosage: 60 MG, 1D
     Route: 048
     Dates: start: 201812, end: 20190109
  8. PREDONINE [Suspect]
     Active Substance: PREDNISOLONE
     Dosage: 30 MG, 1D
     Route: 048
     Dates: start: 20190110, end: 20190206
  9. SUGLAT [Concomitant]
     Active Substance: IPRAGLIFLOZIN L-PROLINE
     Dosage: UNK
  10. EVISTA [Concomitant]
     Active Substance: RALOXIFENE HYDROCHLORIDE
     Dosage: UNK
  11. METGLUCO TABLETS [Concomitant]
     Dosage: UNK
  12. NEUROTROPIN TABLET (SEPARATED CONSITUENT FROM RABBIT SKIN TREATED WITH [Concomitant]
     Dosage: UNK
  13. LYRICA [Concomitant]
     Active Substance: PREGABALIN
     Dosage: UNK
  14. MUCOSTA TABLETS [Concomitant]
     Indication: PROPHYLAXIS
     Dosage: UNK
  15. BELIMUMAB [Suspect]
     Active Substance: BELIMUMAB
     Dosage: 10 MG/KG, 1D
     Route: 041
     Dates: start: 20190110, end: 20190110
  16. PREDONINE [Suspect]
     Active Substance: PREDNISOLONE
     Dosage: 20 MG, 1D
     Route: 048
     Dates: start: 20190207, end: 20190220
  17. PREDONINE [Suspect]
     Active Substance: PREDNISOLONE
     Dosage: 10 MG, 1D
     Route: 048
     Dates: start: 20190221, end: 20190306
  18. VALSARTAN TABLETS [Concomitant]
     Active Substance: VALSARTAN
     Dosage: UNK
  19. BELIMUMAB [Suspect]
     Active Substance: BELIMUMAB
     Dosage: 10 MG/KG, ONCE IN EVERY FOUR WEEKS
     Route: 041
     Dates: start: 20181003, end: 20181128
  20. EDIROL CAPSULE [Concomitant]
     Dosage: UNK
  21. BELIMUMAB [Suspect]
     Active Substance: BELIMUMAB
     Indication: SYSTEMIC LUPUS ERYTHEMATOSUS
     Dosage: 10 MG/KG, ONCE IN EVERY TWO WEEKS
     Route: 041
     Dates: start: 20180808, end: 20180905
  22. PREDONINE [Suspect]
     Active Substance: PREDNISOLONE
     Dosage: 11 MG, 1D
     Route: 048
     Dates: start: 20180906, end: 20181003
  23. CYMBALTA [Concomitant]
     Active Substance: DULOXETINE HYDROCHLORIDE
     Dosage: UNK
  24. SELTOUCH PAP [Concomitant]
     Dosage: UNK
  25. SUJANU COMBINATION TABLETS [Concomitant]
     Active Substance: IPRAGLIFLOZIN L-PROLINE\SITAGLIPTIN PHOSPHATE
     Dosage: UNK
  26. LIXIANA OD TABLETS [Concomitant]
     Active Substance: EDOXABAN TOSYLATE
     Indication: PROPHYLAXIS
     Dosage: UNK
  27. PROGRAF [Suspect]
     Active Substance: TACROLIMUS\TACROLIMUS ANHYDROUS
     Indication: SYSTEMIC LUPUS ERYTHEMATOSUS
     Dosage: UNK
     Route: 048
  28. PRORENAL (JAPAN) [Concomitant]
     Active Substance: LIMAPROST
     Dosage: UNK
  29. METHYCOBAL TABLET [Concomitant]
     Dosage: UNK

REACTIONS (6)
  - Upper respiratory tract inflammation [Recovered/Resolved]
  - Oedema peripheral [Recovering/Resolving]
  - Anaemia [Recovering/Resolving]
  - Immune thrombocytopenic purpura [Recovered/Resolved]
  - Upper respiratory tract inflammation [Recovering/Resolving]
  - Lumbar spinal stenosis [Recovering/Resolving]

NARRATIVE: CASE EVENT DATE: 20180817
